FAERS Safety Report 14557609 (Version 2)
Quarter: 2018Q1

REPORT INFORMATION
  Report Type: Spontaneous
  Country: BR (occurrence: BR)
  Receive Date: 20180221
  Receipt Date: 20180301
  Transmission Date: 20180509
  Serious: Yes (Other)
  Sender: FDA-Public Use
  Company Number: BR-SA-2018SA035366

PATIENT
  Age: 79 Year
  Sex: Female

DRUGS (4)
  1. MANIVASC [Concomitant]
     Active Substance: MANIDIPINE HYDROCHLORIDE
     Indication: HYPERTENSION
     Route: 048
     Dates: start: 2016
  2. CORUS [Concomitant]
     Active Substance: LOSARTAN POTASSIUM
     Indication: HYPERTENSION
     Route: 048
     Dates: start: 2009
  3. STILNOX [Suspect]
     Active Substance: ZOLPIDEM TARTRATE
     Indication: INSOMNIA
     Route: 048
     Dates: start: 2009
  4. ALL OTHER THERAPEUTIC PRODUCTS [Suspect]
     Active Substance: UNSPECIFIED INGREDIENT
     Indication: INSOMNIA
     Route: 065

REACTIONS (9)
  - Insomnia [Not Recovered/Not Resolved]
  - Condition aggravated [Unknown]
  - Apnoea [Not Recovered/Not Resolved]
  - Malaise [Unknown]
  - Therapeutic response decreased [Unknown]
  - Insomnia [Unknown]
  - Somnambulism [Unknown]
  - Product use issue [Unknown]
  - Nightmare [Unknown]
